FAERS Safety Report 5597012-1 (Version None)
Quarter: 2007Q4

REPORT INFORMATION
  Report Type: 
  Country: None (occurrence: None)
  Receive Date: 20071220
  Receipt Date: 20070831
  Transmission Date: 20080405
  Serious: Yes (Hospitalization)
  Sender: FDA-Public Use
  Company Number: ENT 2007-0067

PATIENT

DRUGS (1)
  1. COMTAN [Suspect]

REACTIONS (1)
  - DIARRHOEA [None]
